FAERS Safety Report 18617142 (Version 1)
Quarter: 2020Q4

REPORT INFORMATION
  Report Type: Spontaneous
  Country: US (occurrence: US)
  Receive Date: 20201215
  Receipt Date: 20201215
  Transmission Date: 20210114
  Serious: No
  Sender: FDA-Public Use
  Company Number: US-TEVA-2020-US-1859374

PATIENT
  Age: 76 Year
  Sex: Female
  Weight: 71.2 kg

DRUGS (2)
  1. MUCUS D [Suspect]
     Active Substance: GUAIFENESIN\PSEUDOEPHEDRINE HYDROCHLORIDE
     Indication: NASOPHARYNGITIS
     Dosage: 1 TABLET, Q12 HOURS PRN?MUCUS-D (PSEUDOEPHEDRINE HYDROCHLORIDE 60 MG, GUAIFENESIN 600 MG) PROLONGED-
     Route: 048
     Dates: end: 202007
  2. MUCUS D [Suspect]
     Active Substance: GUAIFENESIN\PSEUDOEPHEDRINE HYDROCHLORIDE
     Indication: PROPHYLAXIS
     Dosage: 1 TABLET, Q12 HOURS PRN;
     Route: 048
     Dates: start: 202011, end: 202011

REACTIONS (1)
  - Renal disorder [Not Recovered/Not Resolved]

NARRATIVE: CASE EVENT DATE: 20201120
